FAERS Safety Report 5108022-2 (Version None)
Quarter: 2006Q3

REPORT INFORMATION
  Report Type: 
  Country: None (occurrence: None)
  Receive Date: 20060915
  Receipt Date: 20060905
  Transmission Date: 20061208
  Serious: Yes (Other)
  Sender: FDA-Public Use
  Company Number: 2006110027

PATIENT
  Age: 54 Year
  Sex: Female
  Weight: 60.3284 kg

DRUGS (3)
  1. CHANTIX [Suspect]
     Indication: SMOKING CESSATION THERAPY
     Dosage: 1 MG (0.5 MG, 2 IN 1 D)
     Dates: start: 20060825
  2. METOPROLOL [Concomitant]
  3. SINGULAIR [Concomitant]

REACTIONS (3)
  - DRUG DOSE OMISSION [None]
  - NAUSEA [None]
  - PERFORMANCE STATUS DECREASED [None]
